FAERS Safety Report 9103956 (Version 1)
Quarter: 2013Q1

REPORT INFORMATION
  Report Type: Spontaneous
  Country: IT (occurrence: IT)
  Receive Date: 20130219
  Receipt Date: 20130219
  Transmission Date: 20140127
  Serious: Yes (Other)
  Sender: FDA-Public Use
  Company Number: IT-JNJFOC-20130204710

PATIENT
  Age: 62 Year
  Sex: Female

DRUGS (1)
  1. PALEXIA [Suspect]
     Indication: PAIN
     Route: 048
     Dates: start: 20130121, end: 20130121

REACTIONS (2)
  - Tendon injury [Unknown]
  - Urinary retention [Unknown]
